FAERS Safety Report 16454108 (Version 1)
Quarter: 2019Q2

REPORT INFORMATION
  Report Type: Spontaneous
  Country: PT (occurrence: PT)
  Receive Date: 20190619
  Receipt Date: 20190619
  Transmission Date: 20190711
  Serious: Yes (Hospitalization)
  Sender: FDA-Public Use
  Company Number: PT-PFIZER INC-2019257372

PATIENT
  Sex: Female
  Weight: 107 kg

DRUGS (5)
  1. INCB039110 [Suspect]
     Active Substance: ITACITINIB
     Indication: ACUTE GRAFT VERSUS HOST DISEASE
     Dosage: UNK
     Dates: start: 20190401, end: 20190423
  2. PREDNISONE. [Suspect]
     Active Substance: PREDNISONE
     Dosage: 240 MG, 1X/DAY
     Route: 048
     Dates: start: 20190418, end: 20190504
  3. PREDNISONE. [Suspect]
     Active Substance: PREDNISONE
     Indication: ACUTE GRAFT VERSUS HOST DISEASE
     Dosage: 280 MG, 1X/DAY
     Route: 048
     Dates: start: 20190403, end: 20190412
  4. PREDNISONE. [Suspect]
     Active Substance: PREDNISONE
     Dosage: 260 MG, 1X/DAY
     Route: 048
     Dates: start: 20190412, end: 20190418
  5. METHYLPREDNISOLONE SODIUM SUCCINATE. [Suspect]
     Active Substance: METHYLPREDNISOLONE SODIUM SUCCINATE
     Indication: ACUTE GRAFT VERSUS HOST DISEASE
     Dosage: 230 MG, 1X/DAY
     Route: 042
     Dates: start: 20190330

REACTIONS (3)
  - Off label use [Unknown]
  - Product use in unapproved indication [Unknown]
  - Oedema peripheral [Unknown]

NARRATIVE: CASE EVENT DATE: 20190330
